FAERS Safety Report 9737525 (Version 1)
Quarter: 2013Q4

REPORT INFORMATION
  Report Type: Spontaneous
  Country: US (occurrence: US)
  Receive Date: 20131207
  Receipt Date: 20131207
  Transmission Date: 20140711
  Serious: No
  Sender: FDA-Public Use
  Company Number: US-009507513-1312USA002817

PATIENT
  Age: 24 Year
  Sex: Female

DRUGS (1)
  1. NEXPLANON [Suspect]
     Indication: CONTRACEPTION
     Dosage: 1 DF; 1 ROD EVERY THREE YEARS
     Route: 059
     Dates: start: 201305, end: 2013

REACTIONS (2)
  - Injection site hypersensitivity [Unknown]
  - Urticaria [Unknown]
